FAERS Safety Report 8145109-4 (Version None)
Quarter: 2012Q1

REPORT INFORMATION
  Report Type: 
  Country: None (occurrence: None)
  Receive Date: 20120217
  Receipt Date: 20120213
  Transmission Date: 20120608
  Serious: Yes (Other)
  Sender: FDA-Public Use
  Company Number: PHHY2012BR013179

PATIENT
  Sex: Female

DRUGS (3)
  1. DIOVAN [Suspect]
     Dosage: 160 MG, UNK
     Dates: end: 20120101
  2. MODURETIC 5-50 [Suspect]
     Dates: end: 20120101
  3. AMLODIPINE [Suspect]

REACTIONS (3)
  - DIZZINESS [None]
  - HYPERTENSION [None]
  - GLAUCOMA [None]
